FAERS Safety Report 4567832-0 (Version None)
Quarter: 2005Q1

REPORT INFORMATION
  Report Type: 
  Country: None (occurrence: None)
  Receive Date: 20050202
  Receipt Date: 20041021
  Transmission Date: 20050727
  Serious: No
  Sender: FDA-Public Use
  Company Number: US-GLAXOSMITHKLINE-A0530816A

PATIENT
  Age: 75 Year
  Sex: Female

DRUGS (6)
  1. AVANDAMET [Suspect]
     Route: 048
     Dates: start: 20041014
  2. LIBRIUM [Concomitant]
  3. LANOXIN [Concomitant]
  4. VERAPAMIL [Concomitant]
  5. TRIAM-ORAL [Concomitant]
     Route: 065
  6. UNKNOWN MEDICATION [Concomitant]
     Route: 065

REACTIONS (3)
  - CONSTIPATION [None]
  - DIARRHOEA [None]
  - NAUSEA [None]
